FAERS Safety Report 23399733 (Version 1)
Quarter: 2024Q1

REPORT INFORMATION
  Report Type: Spontaneous
  Country: US (occurrence: US)
  Receive Date: 20240114
  Receipt Date: 20240114
  Transmission Date: 20240410
  Serious: Yes (Other)
  Sender: FDA-Public Use
  Company Number: US-DEXPHARM-20240020

PATIENT
  Sex: Male

DRUGS (1)
  1. VIGABATRIN [Suspect]
     Active Substance: VIGABATRIN
     Dosage: HE WAS ON THE MEDICATION ABOUT 56 MONTHS

REACTIONS (4)
  - Psychomotor hyperactivity [Recovered/Resolved]
  - Restlessness [Recovered/Resolved]
  - Abnormal behaviour [Recovered/Resolved]
  - Disturbance in attention [Recovered/Resolved]
